FAERS Safety Report 6779692-8 (Version None)
Quarter: 2010Q2

REPORT INFORMATION
  Report Type: 
  Country: None (occurrence: None)
  Receive Date: 20100618
  Receipt Date: 20100607
  Transmission Date: 20101027
  Serious: Yes (Other)
  Sender: FDA-Public Use
  Company Number: TR-PFIZER INC-2010074667

PATIENT
  Age: 54 Year
  Sex: Female

DRUGS (1)
  1. SULPERAZON [Suspect]
     Indication: ESCHERICHIA INFECTION

REACTIONS (1)
  - EPISTAXIS [None]
